FAERS Safety Report 9159343 (Version 1)
Quarter: 2013Q1

REPORT INFORMATION
  Report Type: Spontaneous
  Country: US (occurrence: US)
  Receive Date: 20130313
  Receipt Date: 20130313
  Transmission Date: 20140127
  Serious: Yes (Other)
  Sender: FDA-Public Use
  Company Number: US-JNJFOC-20130301646

PATIENT
  Sex: Male

DRUGS (1)
  1. CONCERTA [Suspect]
     Indication: ATTENTION DEFICIT/HYPERACTIVITY DISORDER
     Route: 048

REACTIONS (6)
  - Self-injurious ideation [Unknown]
  - Drug dose omission [Unknown]
  - Palpitations [Unknown]
  - Social avoidant behaviour [Unknown]
  - Withdrawal syndrome [Unknown]
  - Agitation [Unknown]
